FAERS Safety Report 9565581 (Version 3)
Quarter: 2013Q4

REPORT INFORMATION
  Report Type: Report from Study
  Country: US (occurrence: US)
  Receive Date: 20130930
  Receipt Date: 20131231
  Transmission Date: 20140711
  Serious: Yes (Hospitalization)
  Sender: FDA-Public Use
  Company Number: US-ACTELION-A-NJ2013-81721

PATIENT
  Age: 77 Year
  Sex: Female

DRUGS (16)
  1. TRACLEER [Suspect]
     Indication: PULMONARY ARTERIAL HYPERTENSION
     Dosage: 125 MG, BID
     Route: 048
     Dates: start: 20121112
  2. WARFARIN [Concomitant]
     Dosage: 3 MG, UNK
  3. CALCIUM [Concomitant]
     Dosage: UNK, BID
  4. DOCUSATE [Concomitant]
     Dosage: 100 MG, BID
  5. FUROSEMIDE [Concomitant]
     Dosage: 20 MG, UNK
  6. GLIPIZIDE [Concomitant]
     Dosage: 5 MG, BID
  7. IPRATROPIUM [Concomitant]
     Dosage: 2.5 MG, TID
  8. LEVALBUTEROL [Concomitant]
     Dosage: 125 MG, TID
  9. LEVOTHYROXINE [Concomitant]
     Dosage: 0.075 MG, UNK
  10. LISINOPRIL [Concomitant]
     Dosage: 40 MG, UNK
  11. LOVASTATIN [Concomitant]
     Dosage: 20 MG, UNK
  12. METOPROLOL TARTRATE [Concomitant]
     Dosage: 50 MG, BID
  13. ALLOPURINOL [Concomitant]
     Dosage: 300 MG, UNK
  14. ICAPS [Concomitant]
     Dosage: UNK, BID
  15. OMEPRAZOL [Concomitant]
     Dosage: 20 MG, UNK
  16. XANAX [Concomitant]
     Dosage: UNK, PRN

REACTIONS (5)
  - Arterial occlusive disease [Unknown]
  - Dyspnoea [Recovered/Resolved]
  - Decreased activity [Unknown]
  - Fall [Unknown]
  - Gait disturbance [Unknown]
